FAERS Safety Report 9450722 (Version 1)
Quarter: 2013Q3

REPORT INFORMATION
  Report Type: Spontaneous
  Country: CA (occurrence: None)
  Receive Date: 20130807
  Receipt Date: 20130807
  Transmission Date: 20140515
  Serious: Yes (Other)
  Sender: FDA-Public Use
  Company Number: SYM-2013-07617

PATIENT
  Age: 38 Year
  Sex: Male

DRUGS (1)
  1. WELLBURTRIN [Suspect]
     Indication: PRODUCT USED FOR UNKNOWN INDICATION
     Route: 042

REACTIONS (3)
  - Convulsion [None]
  - Drug abuse [None]
  - Intentional drug misuse [None]
